FAERS Safety Report 19706801 (Version 3)
Quarter: 2022Q1

REPORT INFORMATION
  Report Type: Report from Study
  Country: US (occurrence: US)
  Receive Date: 20210817
  Receipt Date: 20220225
  Transmission Date: 20220423
  Serious: No
  Sender: FDA-Public Use
  Company Number: US-BIOVITRUM-2021US7502

PATIENT
  Age: 22 Year
  Sex: Male

DRUGS (3)
  1. KINERET [Suspect]
     Active Substance: ANAKINRA
     Indication: Systemic lupus erythematosus
     Route: 058
     Dates: start: 20210728
  2. KINERET [Suspect]
     Active Substance: ANAKINRA
     Indication: Haemophagocytic lymphohistiocytosis
     Route: 058
     Dates: start: 202001
  3. PLAQUENIL [Concomitant]
     Active Substance: HYDROXYCHLOROQUINE SULFATE

REACTIONS (8)
  - Fatigue [Unknown]
  - Asthenia [Unknown]
  - Blood test abnormal [Unknown]
  - Myalgia [Unknown]
  - Erythema [Unknown]
  - Pruritus [Unknown]
  - Rash pruritic [Unknown]
  - Off label use [Unknown]

NARRATIVE: CASE EVENT DATE: 20210728
